FAERS Safety Report 6291281-0 (Version None)
Quarter: 2009Q3

REPORT INFORMATION
  Report Type: 
  Country: None (occurrence: None)
  Receive Date: 20090727
  Receipt Date: 20080905
  Transmission Date: 20100115
  Serious: Yes (Hospitalization)
  Sender: FDA-Public Use
  Company Number: 08H-163-0314863-00

PATIENT
  Age: 62 Year
  Sex: Male

DRUGS (2)
  1. KETOROLAC TROMETHAMINE [Suspect]
     Dates: start: 20080101, end: 20080101
  2. PRILOSEC [Concomitant]

REACTIONS (3)
  - POST PROCEDURAL COMPLICATION [None]
  - THROMBOSIS [None]
  - URETERIC OBSTRUCTION [None]
